FAERS Safety Report 7874046-5 (Version None)
Quarter: 2011Q4

REPORT INFORMATION
  Report Type: 
  Country: None (occurrence: None)
  Receive Date: 20111030
  Receipt Date: 20110513
  Transmission Date: 20120403
  Serious: No
  Sender: FDA-Public Use
  Company Number: US-AMGEN-USASP2011020384

PATIENT
  Age: 50 Year
  Sex: Female

DRUGS (1)
  1. ENBREL [Suspect]
     Indication: PSORIATIC ARTHROPATHY
     Dosage: 50 MG, QWK
     Dates: start: 20110404

REACTIONS (10)
  - INJECTION SITE ERYTHEMA [None]
  - INJECTION SITE REACTION [None]
  - INJECTION SITE SWELLING [None]
  - PSORIASIS [None]
  - IRRITABLE BOWEL SYNDROME [None]
  - INJECTION SITE INDURATION [None]
  - INJECTION SITE WARMTH [None]
  - PSORIATIC ARTHROPATHY [None]
  - INJECTION SITE RECALL REACTION [None]
  - INJECTION SITE URTICARIA [None]
